FAERS Safety Report 11033385 (Version 1)
Quarter: 2015Q2

REPORT INFORMATION
  Report Type: Spontaneous
  Country: RU (occurrence: RU)
  Receive Date: 20150415
  Receipt Date: 20150415
  Transmission Date: 20150821
  Serious: Yes (Other)
  Sender: FDA-Public Use
  Company Number: RU-BAYER-2015-118719

PATIENT
  Age: 32 Year
  Sex: Female
  Weight: 60 kg

DRUGS (1)
  1. QLAIRA [Suspect]
     Active Substance: DIENOGEST\ESTRADIOL VALERATE
     Indication: CONTRACEPTION
     Dosage: UNK
     Route: 048
     Dates: start: 201404, end: 20150310

REACTIONS (4)
  - Pregnancy on oral contraceptive [None]
  - Abnormal withdrawal bleeding [None]
  - Drug ineffective [None]
  - Abortion missed [None]

NARRATIVE: CASE EVENT DATE: 201502
